FAERS Safety Report 7624871-0 (Version None)
Quarter: 2011Q3

REPORT INFORMATION
  Report Type: 
  Country: None (occurrence: None)
  Receive Date: 20110720
  Receipt Date: 20110711
  Transmission Date: 20111222
  Serious: Yes (Hospitalization)
  Sender: FDA-Public Use
  Company Number: BR-ASTRAZENECA-2011SE41625

PATIENT
  Age: 89 Year
  Sex: Male

DRUGS (2)
  1. SEROQUEL [Suspect]
     Indication: HALLUCINATION
     Route: 048
     Dates: start: 20100101
  2. CRESTOR [Suspect]
     Indication: HYPERCHOLESTEROLAEMIA
     Dosage: OD
     Route: 048
     Dates: start: 20060101, end: 20100101

REACTIONS (4)
  - BRAIN NEOPLASM [None]
  - BRAIN TUMOUR OPERATION [None]
  - HALLUCINATION [None]
  - OFF LABEL USE [None]
